FAERS Safety Report 6752216-7 (Version None)
Quarter: 2010Q2

REPORT INFORMATION
  Report Type: 
  Country: None (occurrence: None)
  Receive Date: 20100526
  Receipt Date: 20100413
  Transmission Date: 20101027
  Serious: No
  Sender: FDA-Public Use
  Company Number: 307108

PATIENT
  Age: 52 Year
  Sex: Male

DRUGS (6)
  1. VICTOZA [Suspect]
     Indication: ILL-DEFINED DISORDER
     Dosage: 0.6 MG, QD, SUBCUTANEOUS ; 1.8 MG, QD, SUBCUTANEOUS
     Route: 058
     Dates: start: 20100324, end: 20100330
  2. VICTOZA [Suspect]
     Indication: ILL-DEFINED DISORDER
     Dosage: 0.6 MG, QD, SUBCUTANEOUS ; 1.8 MG, QD, SUBCUTANEOUS
     Route: 058
     Dates: start: 20100408
  3. VICTOZA [Suspect]
     Dosage: 1.2 MG, QD, SUBCUTANEOUS
     Route: 058
     Dates: start: 20100331, end: 20100407
  4. METFORMIN HCL [Concomitant]
  5. GLIMEPIDE (GLIMEPIRIDE) [Concomitant]
  6. LISINOPRIL [Concomitant]

REACTIONS (2)
  - ERUCTATION [None]
  - FLATULENCE [None]
